FAERS Safety Report 9698555 (Version 1)
Quarter: 2013Q4

REPORT INFORMATION
  Report Type: Spontaneous
  Country: GB (occurrence: GB)
  Receive Date: 20131120
  Receipt Date: 20131120
  Transmission Date: 20140711
  Serious: Yes (Other)
  Sender: FDA-Public Use
  Company Number: GB-PFIZER INC-2013326262

PATIENT
  Age: 74 Year
  Sex: Female

DRUGS (13)
  1. ZYVOX [Suspect]
     Indication: BRONCHIECTASIS
     Dosage: 600 MG, UNK
     Route: 048
     Dates: start: 20131024, end: 20131030
  2. ADCAL-D3 [Concomitant]
     Dosage: UNK
  3. CARBOCISTEINE [Concomitant]
     Dosage: UNK
  4. CODEINE [Concomitant]
     Dosage: UNK
  5. FUROSEMIDE [Concomitant]
     Dosage: UNK
  6. IPRATROPIUM BROMIDE [Concomitant]
     Dosage: UNK
  7. LEVOTHYROXINE [Concomitant]
     Dosage: UNK
  8. METOCLOPRAMIDE [Concomitant]
     Dosage: UNK
  9. OMEPRAZOLE [Concomitant]
     Dosage: UNK
  10. DOMPERIDONE [Concomitant]
     Dosage: UNK
  11. PARACETAMOL [Concomitant]
     Dosage: UNK
  12. PREGABALIN [Concomitant]
     Dosage: UNK
  13. SALBUTAMOL [Concomitant]
     Dosage: UNK

REACTIONS (3)
  - Visual impairment [Unknown]
  - Oscillopsia [Unknown]
  - Nystagmus [Unknown]
